FAERS Safety Report 19981891 (Version 1)
Quarter: 2021Q4

REPORT INFORMATION
  Report Type: Spontaneous
  Country: GB (occurrence: GB)
  Receive Date: 20211022
  Receipt Date: 20211022
  Transmission Date: 20220303
  Serious: Yes (Other)
  Sender: FDA-Public Use
  Company Number: None

PATIENT
  Age: 34 Year
  Sex: Female
  Weight: 106.13 kg

DRUGS (10)
  1. VENLAFAXINE [Suspect]
     Active Substance: VENLAFAXINE HYDROCHLORIDE
     Indication: Borderline personality disorder
     Dosage: 150MG
     Route: 048
     Dates: start: 20100118
  2. VENLAFAXINE [Suspect]
     Active Substance: VENLAFAXINE HYDROCHLORIDE
     Route: 048
     Dates: start: 2002
  3. IMODIUM [Concomitant]
     Active Substance: LOPERAMIDE HYDROCHLORIDE
     Dosage: BETWEEN ONE EIGTH AND ONE HALF OF A 5ML TEASPOON DEPENDING ON SYMPTOMS
  4. SPIRONOLACTONE [Concomitant]
     Active Substance: SPIRONOLACTONE
     Dosage: 100MG
  5. LEVOTHYROXINE [Concomitant]
     Active Substance: LEVOTHYROXINE
     Dosage: 100 MCG AND 25 MCG
  6. BISOPROLOL [Concomitant]
     Active Substance: BISOPROLOL
     Dosage: 2.5MG
  7. LANSOPRAZOLE [Concomitant]
     Active Substance: LANSOPRAZOLE
     Dosage: 30MG
  8. FEXOFENADINE [Concomitant]
     Active Substance: FEXOFENADINE HYDROCHLORIDE
     Dosage: 180MG
  9. QUETIAPINE [Concomitant]
     Active Substance: QUETIAPINE
     Dosage: 25MG
  10. VENLAFAXINE [Concomitant]
     Active Substance: VENLAFAXINE HYDROCHLORIDE
     Indication: Borderline personality disorder
     Dosage: 150MG
     Route: 048
     Dates: start: 20100118

REACTIONS (16)
  - Mania [Unknown]
  - Diarrhoea [Unknown]
  - Libido increased [Recovering/Resolving]
  - Inappropriate affect [Unknown]
  - Disturbance in attention [Unknown]
  - Abdominal pain upper [Recovered/Resolved]
  - Insomnia [Unknown]
  - Hearing disability [Unknown]
  - Fatigue [Unknown]
  - Salivary hypersecretion [Unknown]
  - Urinary tract infection [Unknown]
  - Constipation [Unknown]
  - Dry mouth [Unknown]
  - Vision blurred [Unknown]
  - Dizziness [Unknown]
  - Product residue present [Unknown]

NARRATIVE: CASE EVENT DATE: 20020101
